FAERS Safety Report 5914286-5 (Version None)
Quarter: 2008Q4

REPORT INFORMATION
  Report Type: 
  Country: None (occurrence: None)
  Receive Date: 20081009
  Receipt Date: 20080922
  Transmission Date: 20090506
  Serious: No
  Sender: FDA-Public Use
  Company Number: US-B.I. PHARMACEUTICALS,INC./RIDGEFIELD-2008-BP-14805BP

PATIENT
  Age: 18 Month

DRUGS (1)
  1. ZANTAC 150 [Suspect]
     Route: 048

REACTIONS (1)
  - ACCIDENTAL OVERDOSE [None]
